FAERS Safety Report 12392161 (Version 2)
Quarter: 2016Q3

REPORT INFORMATION
  Report Type: Report from Study
  Country: US (occurrence: US)
  Receive Date: 20160523
  Receipt Date: 20160706
  Transmission Date: 20161109
  Serious: Yes (Other)
  Sender: FDA-Public Use
  Company Number: PHEH2016US012605

PATIENT
  Age: 72 Year
  Sex: Female
  Weight: 71.16 kg

DRUGS (9)
  1. PREDNISONE. [Concomitant]
     Active Substance: PREDNISONE
     Dosage: 1 TABLET 1 HOUR PRIOR TO SCAN (50 MG CONCENTRATION)
     Route: 065
  2. FIORICET WITH CODEINE [Concomitant]
     Active Substance: ACETAMINOPHEN\BUTALBITAL\CAFFEINE\CODEINE PHOSPHATE
     Indication: PRODUCT USED FOR UNKNOWN INDICATION
     Dosage: 1-2 CAPS EVERY 4 HOURS AS NEED MAXIMUM OF 9 CAP IN 24 HOURS (50 MG/325 MG/40 MG/ 30 MG CONCENTRATIO)
     Route: 048
  3. EMLA [Concomitant]
     Active Substance: LIDOCAINE\PRILOCAINE
     Indication: PRODUCT USED FOR UNKNOWN INDICATION
     Dosage: 1 HOUR PROIR TO PROCEDURE
     Route: 065
  4. VOTRIENT [Suspect]
     Active Substance: PAZOPANIB HYDROCHLORIDE
     Indication: OVARIAN CANCER
     Dosage: 4 DF, QD, 1 HOUR BEFORE BREAKFAST
     Route: 048
     Dates: start: 201603
  5. DECADRON [Concomitant]
     Active Substance: DEXAMETHASONE
     Indication: PRODUCT USED FOR UNKNOWN INDICATION
     Dosage: 1 DF, QD
     Route: 048
  6. BENADRYL [Concomitant]
     Active Substance: DIPHENHYDRAMINE HYDROCHLORIDE
     Indication: PRODUCT USED FOR UNKNOWN INDICATION
     Dosage: 1 CAP 1 HOUR PRIOR TO SCAN
     Route: 065
  7. PREDNISONE. [Concomitant]
     Active Substance: PREDNISONE
     Indication: PRODUCT USED FOR UNKNOWN INDICATION
     Dosage: 1 TABLET 13 HOURS BEFORE SCAN AND 1 TABLET 7 HOURS BEFORE SCAN (20 MG CONCENTRATION)
     Route: 065
  8. MARIJUANA [Concomitant]
     Active Substance: CANNABIS SATIVA SUBSP. INDICA TOP
     Indication: PRODUCT USED FOR UNKNOWN INDICATION
     Dosage: UNK UNK, PRN
     Route: 065
  9. NORCO [Concomitant]
     Active Substance: ACETAMINOPHEN\HYDROCODONE BITARTRATE
     Indication: PRODUCT USED FOR UNKNOWN INDICATION
     Dosage: 1 TO 2 TABLET EVERY 6 HOUES AS NEEDED (MAX 8 TABLETS PER DAY)
     Route: 048

REACTIONS (10)
  - Cough [Unknown]
  - Dyspnoea paroxysmal nocturnal [Unknown]
  - Asthenia [Unknown]
  - Increased appetite [Unknown]
  - Lung consolidation [Unknown]
  - Hypersensitivity [Unknown]
  - Alopecia [Unknown]
  - Pneumonia [Recovering/Resolving]
  - Dyspnoea [Unknown]
  - Nausea [Unknown]

NARRATIVE: CASE EVENT DATE: 20160411
